FAERS Safety Report 7988155-3 (Version None)
Quarter: 2011Q4

REPORT INFORMATION
  Report Type: 
  Country: None (occurrence: None)
  Receive Date: 20111216
  Receipt Date: 20101216
  Transmission Date: 20120403
  Serious: No
  Sender: FDA-Public Use
  Company Number: US-BRISTOL-MYERS SQUIBB COMPANY-15427586

PATIENT
  Age: 9 Year
  Sex: Male
  Weight: 35 kg

DRUGS (1)
  1. ABILIFY [Suspect]
     Dosage: STARTED ON 1.5YRS AGO;INCREASED LAST WEEK TO 15MG

REACTIONS (1)
  - COGNITIVE DISORDER [None]
